FAERS Safety Report 20031589 (Version 2)
Quarter: 2021Q4

REPORT INFORMATION
  Report Type: Report from Study
  Country: US (occurrence: US)
  Receive Date: 20211103
  Receipt Date: 20211226
  Transmission Date: 20220303
  Serious: Yes (Other)
  Sender: FDA-Public Use
  Company Number: US-ABBVIE-21K-163-3761743-00

PATIENT
  Age: 55 Year
  Sex: Female
  Weight: 69.008 kg

DRUGS (6)
  1. HUMIRA [Suspect]
     Active Substance: ADALIMUMAB
     Indication: Uveitis
     Route: 058
     Dates: start: 201701
  2. HUMIRA [Suspect]
     Active Substance: ADALIMUMAB
     Indication: Ankylosing spondylitis
  3. PFIZER-BIONTECH COVID-19 VACCINE [Concomitant]
     Active Substance: TOZINAMERAN
     Indication: COVID-19 immunisation
     Dosage: 1ST DOSE
     Route: 030
     Dates: start: 20210416, end: 20210416
  4. PFIZER-BIONTECH COVID-19 VACCINE [Concomitant]
     Active Substance: TOZINAMERAN
     Dosage: 2ND DOSE
     Route: 030
     Dates: start: 20210516, end: 20210516
  5. OZURDEX [Concomitant]
     Active Substance: DEXAMETHASONE
     Indication: Cystoid macular oedema
  6. MODERNA COVID-19 VACCINE [Concomitant]
     Active Substance: ELASOMERAN
     Indication: COVID-19 immunisation
     Route: 030
     Dates: start: 20211110, end: 20211110

REACTIONS (21)
  - Uterine polyp [Recovered/Resolved]
  - Vaginal haemorrhage [Recovered/Resolved]
  - Spinal disorder [Unknown]
  - Loss of consciousness [Recovered/Resolved]
  - SARS-CoV-2 test positive [Recovered/Resolved]
  - Precancerous condition [Recovered/Resolved]
  - Smear cervix abnormal [Recovered/Resolved]
  - Oxygen saturation decreased [Recovered/Resolved]
  - Blood pressure decreased [Recovered/Resolved]
  - Procedural complication [Recovered/Resolved]
  - Heart rate decreased [Recovering/Resolving]
  - Fatigue [Recovered/Resolved]
  - Anosmia [Recovering/Resolving]
  - Cough [Recovered/Resolved]
  - Depression [Recovering/Resolving]
  - Ageusia [Recovering/Resolving]
  - Confusional state [Recovered/Resolved]
  - Eye pain [Recovered/Resolved]
  - Papilloma viral infection [Recovered/Resolved]
  - Headache [Recovered/Resolved]
  - Nausea [Recovered/Resolved]

NARRATIVE: CASE EVENT DATE: 20210101
